FAERS Safety Report 4677029-1 (Version None)
Quarter: 2005Q2

REPORT INFORMATION
  Report Type: 
  Country: None (occurrence: None)
  Receive Date: 20050526
  Receipt Date: 20050331
  Transmission Date: 20051028
  Serious: Yes (Other)
  Sender: FDA-Public Use
  Company Number: WAES 0504USA00062

PATIENT
  Age: 22 Year
  Sex: Female

DRUGS (3)
  1. VYTORIN [Suspect]
     Dosage: PO
     Route: 048
  2. INSULIN [Concomitant]
  3. STATIN (UNSPECIFIED) [Concomitant]

REACTIONS (1)
  - RHABDOMYOLYSIS [None]
